FAERS Safety Report 8834165 (Version 1)
Quarter: 2012Q4

REPORT INFORMATION
  Report Type: 
  Country: TR (occurrence: TR)
  Receive Date: 20121010
  Receipt Date: 20121010
  Transmission Date: 20130627
  Serious: Yes (Death)
  Sender: FDA-Public Use
  Company Number: TR-WATSON-2012-17367

PATIENT
  Age: 19 Year
  Sex: Female

DRUGS (2)
  1. SODIUM VALPROATE [Suspect]
     Indication: CHOREA
     Dosage: 500 mg, unknown
     Route: 065
  2. TETRADOX                           /00020001/ [Concomitant]
     Indication: BRUCELLOSIS
     Dosage: UNK
     Route: 065

REACTIONS (3)
  - Drug reaction with eosinophilia and systemic symptoms [Fatal]
  - Encephalopathy [Fatal]
  - Metabolic acidosis [Fatal]
